FAERS Safety Report 4700862-4 (Version None)
Quarter: 2005Q2

REPORT INFORMATION
  Report Type: 
  Country: None (occurrence: None)
  Receive Date: 20050628
  Receipt Date: 20050415
  Transmission Date: 20051028
  Serious: Yes (Life-Threatening, Hospitalization)
  Sender: FDA-Public Use
  Company Number: US-SANOFI-SYNTHELABO-A03200501117

PATIENT
  Sex: Female
  Weight: 60 kg

DRUGS (3)
  1. ELOXATIN [Suspect]
     Indication: COLON CANCER STAGE III
     Route: 042
     Dates: start: 20050125, end: 20050125
  2. 5-FLUROUROCIL [Concomitant]
     Dosage: UNK
     Route: 042
  3. LEUCOVORIN [Concomitant]
     Dosage: UNK
     Route: 042

REACTIONS (9)
  - CONFUSIONAL STATE [None]
  - DIARRHOEA [None]
  - DYSARTHRIA [None]
  - GASTROINTESTINAL HAEMORRHAGE [None]
  - HYPONATRAEMIA [None]
  - NEUROPATHY [None]
  - OESOPHAGEAL CANDIDIASIS [None]
  - PANCYTOPENIA [None]
  - PNEUMONIA KLEBSIELLA [None]
